FAERS Safety Report 23053638 (Version 3)
Quarter: 2024Q1

REPORT INFORMATION
  Report Type: Report from Study
  Country: US (occurrence: US)
  Receive Date: 20231011
  Receipt Date: 20240201
  Transmission Date: 20240410
  Serious: Yes (Death, Other)
  Sender: FDA-Public Use
  Company Number: US-ABBVIE-5445277

PATIENT
  Sex: Male
  Weight: 91 kg

DRUGS (1)
  1. LINZESS [Suspect]
     Active Substance: LINACLOTIDE
     Indication: Product used for unknown indication
     Dosage: FORM STRENGTH: 145 MICROGRAM?TAKE ONE CAPSULE BY MOUTH DAILY 30 MINUTES BEFORE FIRST MEAL OF THE DAY
     Route: 048

REACTIONS (2)
  - Throat cancer [Fatal]
  - Throat cancer [Recovered/Resolved]
